FAERS Safety Report 7553670-3 (Version None)
Quarter: 2011Q2

REPORT INFORMATION
  Report Type: 
  Country: None (occurrence: None)
  Receive Date: 20110614
  Receipt Date: 20110614
  Transmission Date: 20111010
  Serious: No
  Sender: FDA-Public Use
  Company Number: None

PATIENT
  Age: 57 Year
  Sex: Female
  Weight: 165.1093 kg

DRUGS (1)
  1. CYMBALTA [Suspect]
     Indication: BACK PAIN
     Dosage: 60 MG. 1 CAPSULE DAILY PO
     Route: 048
     Dates: start: 20110510, end: 20110612

REACTIONS (3)
  - FATIGUE [None]
  - SOMNOLENCE [None]
  - MUSCLE SPASMS [None]
